FAERS Safety Report 12298021 (Version 1)
Quarter: 2016Q2

REPORT INFORMATION
  Report Type: Report from Study
  Country: US (occurrence: US)
  Receive Date: 20160422
  Receipt Date: 20160422
  Transmission Date: 20160815
  Serious: No
  Sender: FDA-Public Use
  Company Number: US-AMGEN-USASL2016042600

PATIENT
  Age: 83 Year
  Sex: Female
  Weight: 89.34 kg

DRUGS (1)
  1. REPATHA [Suspect]
     Active Substance: EVOLOCUMAB
     Indication: PRODUCT USED FOR UNKNOWN INDICATION
     Dosage: UNK, Q2WK
     Route: 030

REACTIONS (3)
  - Injection site pain [Unknown]
  - Incorrect route of drug administration [Not Recovered/Not Resolved]
  - Wrong technique in product usage process [Unknown]
